FAERS Safety Report 5241580-6 (Version None)
Quarter: 2007Q1

REPORT INFORMATION
  Report Type: 
  Country: None (occurrence: None)
  Receive Date: 20070220
  Receipt Date: 20070207
  Transmission Date: 20070707
  Serious: Yes (Hospitalization, Other)
  Sender: FDA-Public Use
  Company Number: CA-AVENTIS-200621491GDDC

PATIENT
  Age: 55 Year
  Sex: Male

DRUGS (6)
  1. FLAGYL [Suspect]
     Route: 042
     Dates: start: 20001207, end: 20001215
  2. FLAGYL [Suspect]
     Route: 048
     Dates: start: 20001215, end: 20001216
  3. SOLU-MEDROL [Suspect]
     Route: 042
     Dates: start: 20001210, end: 20001215
  4. VANCOMYCIN HYDROCHLORIDE [Concomitant]
     Route: 048
     Dates: start: 20001207
  5. HEPARIN [Concomitant]
     Route: 058
  6. ZANTAC [Concomitant]
     Route: 042

REACTIONS (2)
  - BLOOD ALKALINE PHOSPHATASE INCREASED [None]
  - BLOOD AMYLASE INCREASED [None]
